FAERS Safety Report 23431579 (Version 1)
Quarter: 2024Q1

REPORT INFORMATION
  Report Type: Spontaneous
  Country: FI (occurrence: FI)
  Receive Date: 20240123
  Receipt Date: 20240123
  Transmission Date: 20240409
  Serious: Yes (Death)
  Sender: FDA-Public Use
  Company Number: None

PATIENT
  Age: 25 Year
  Sex: Male

DRUGS (2)
  1. OLANZAPINE [Suspect]
     Active Substance: OLANZAPINE
     Indication: Depression
     Route: 048
  2. OLANZAPINE [Suspect]
     Active Substance: OLANZAPINE
     Indication: Completed suicide
     Route: 048

REACTIONS (6)
  - Completed suicide [Fatal]
  - Toxicity to various agents [Fatal]
  - Vomiting [Fatal]
  - Aspiration [Fatal]
  - Pneumonia aspiration [Fatal]
  - Intentional overdose [Fatal]

NARRATIVE: CASE EVENT DATE: 20100122
